FAERS Safety Report 14377449 (Version 1)
Quarter: 2018Q1

REPORT INFORMATION
  Report Type: Spontaneous
  Country: US (occurrence: US)
  Receive Date: 20180111
  Receipt Date: 20180111
  Transmission Date: 20180509
  Serious: Yes (Life-Threatening)
  Sender: FDA-Public Use
  Company Number: None

PATIENT
  Age: 50 Year
  Sex: Male
  Weight: 58.97 kg

DRUGS (4)
  1. GLATIRAMER 40MG/ML MYLAN [Suspect]
     Active Substance: GLATIRAMER
     Indication: MULTIPLE SCLEROSIS
     Dosage: 40 MG/ML INJECT BELOW SKIN
     Dates: start: 20171207, end: 20180104
  2. CHANTIX [Concomitant]
     Active Substance: VARENICLINE TARTRATE
  3. SOMA [Concomitant]
     Active Substance: CARISOPRODOL
  4. LYRICA [Concomitant]
     Active Substance: PREGABALIN

REACTIONS (2)
  - Product substitution issue [None]
  - Injection site pain [None]

NARRATIVE: CASE EVENT DATE: 20171207
